FAERS Safety Report 13559903 (Version 1)
Quarter: 2017Q2

REPORT INFORMATION
  Report Type: Spontaneous
  Country: CH (occurrence: CH)
  Receive Date: 20170518
  Receipt Date: 20170518
  Transmission Date: 20170830
  Serious: Yes (Hospitalization)
  Sender: FDA-Public Use
  Company Number: CH-JNJFOC-20170508961

PATIENT
  Age: 18 Year
  Sex: Male

DRUGS (10)
  1. OLANZAPINE. [Suspect]
     Active Substance: OLANZAPINE
     Indication: PRODUCT USED FOR UNKNOWN INDICATION
     Route: 040
     Dates: start: 20170417, end: 20170420
  2. HALDOL [Suspect]
     Active Substance: HALOPERIDOL
     Indication: PRODUCT USED FOR UNKNOWN INDICATION
     Dosage: 3 DAYS
     Route: 040
     Dates: start: 20170420, end: 20170422
  3. MORPHINE [Concomitant]
     Active Substance: MORPHINE
     Route: 065
  4. CLOMETHIAZOLE [Concomitant]
     Active Substance: CLOMETHIAZOLE
     Route: 065
     Dates: start: 20170415, end: 20170417
  5. HEPARIN [Concomitant]
     Active Substance: HEPARIN SODIUM
     Route: 065
  6. LORAZEPAM. [Concomitant]
     Active Substance: LORAZEPAM
     Route: 065
  7. FENTANYL. [Concomitant]
     Active Substance: FENTANYL
     Route: 065
  8. HALDOL [Suspect]
     Active Substance: HALOPERIDOL
     Indication: PRODUCT USED FOR UNKNOWN INDICATION
     Route: 040
     Dates: start: 20170415, end: 201704
  9. QUETIAPINE. [Concomitant]
     Active Substance: QUETIAPINE
     Route: 065
     Dates: start: 20170425
  10. IMIPENEM [Concomitant]
     Active Substance: IMIPENEM
     Route: 065

REACTIONS (2)
  - Dysphagia [Not Recovered/Not Resolved]
  - Dysphonia [Unknown]

NARRATIVE: CASE EVENT DATE: 201704
